FAERS Safety Report 9440196 (Version 2)
Quarter: 2013Q3

REPORT INFORMATION
  Report Type: Report from Study
  Country: BR (occurrence: BR)
  Receive Date: 20130805
  Receipt Date: 20130807
  Transmission Date: 20140515
  Serious: Yes (Other)
  Sender: FDA-Public Use
  Company Number: PHHY2013BR082884

PATIENT
  Age: 12 Year
  Sex: Female
  Weight: 25 kg

DRUGS (7)
  1. EXJADE [Suspect]
     Indication: ANAEMIA
     Dosage: 500 MG, PER DAY
  2. EXJADE [Suspect]
     Dosage: 250 MG, PER DAY
  3. B COMPLEX [Concomitant]
     Dosage: UNK UKN, UNK
  4. FOLIC ACID [Concomitant]
     Dosage: UNK UKN, UNK
  5. DESFERAL [Concomitant]
  6. ASA [Concomitant]
     Dosage: UNK UKN, UNK
  7. TRANSFUSIONS [Concomitant]

REACTIONS (2)
  - Pneumonia [Recovering/Resolving]
  - Blood iron increased [Recovering/Resolving]
